FAERS Safety Report 9747656 (Version 1)
Quarter: 2013Q4

REPORT INFORMATION
  Report Type: Spontaneous
  Country: KR (occurrence: None)
  Receive Date: 20131206
  Receipt Date: 20131206
  Transmission Date: 20140711
  Serious: Yes (Other)
  Sender: FDA-Public Use
  Company Number: 2013P1021558

PATIENT
  Age: 79 Year
  Sex: Female

DRUGS (2)
  1. DONEPEZIL [Suspect]
     Indication: PARKINSON^S DISEASE
  2. LEVODOPA [Concomitant]

REACTIONS (6)
  - Torticollis [None]
  - Dysarthria [None]
  - Bradykinesia [None]
  - Muscle rigidity [None]
  - Osteopenia [None]
  - Cerebral atrophy [None]
